FAERS Safety Report 9020229 (Version 1)
Quarter: 2013Q1

REPORT INFORMATION
  Report Type: Spontaneous
  Country: US (occurrence: US)
  Receive Date: 20130119
  Receipt Date: 20130119
  Transmission Date: 20140127
  Serious: No
  Sender: FDA-Public Use
  Company Number: US-ALLERGAN-1209828US

PATIENT
  Age: 54 Year
  Sex: Female

DRUGS (1)
  1. BOTOX? [Suspect]
     Indication: FOOT DEFORMITY
     Dosage: UNK, SINGLE
     Route: 030
     Dates: start: 20120613, end: 20120613

REACTIONS (2)
  - Off label use [Unknown]
  - Drug ineffective [Unknown]
